FAERS Safety Report 16541844 (Version 6)
Quarter: 2019Q3

REPORT INFORMATION
  Report Type: Spontaneous
  Country: US (occurrence: US)
  Receive Date: 20190708
  Receipt Date: 20190919
  Transmission Date: 20191004
  Serious: Yes (Hospitalization, Other)
  Sender: FDA-Public Use
  Company Number: US-JNJFOC-20190635752

PATIENT
  Age: 43 Year
  Sex: Male

DRUGS (1)
  1. RISPERDAL [Suspect]
     Active Substance: RISPERIDONE
     Indication: PRODUCT USED FOR UNKNOWN INDICATION
     Route: 048

REACTIONS (9)
  - Anger [Unknown]
  - Stress [Unknown]
  - Physical assault [Recovered/Resolved]
  - Self-injurious ideation [Unknown]
  - Mental disorder [Unknown]
  - Suicide attempt [Unknown]
  - Insomnia [Not Recovered/Not Resolved]
  - Headache [Unknown]
  - Brain injury [Unknown]

NARRATIVE: CASE EVENT DATE: 201906
